FAERS Safety Report 5056175-7 (Version None)
Quarter: 2006Q3

REPORT INFORMATION
  Report Type: 
  Country: None (occurrence: None)
  Receive Date: 20060714
  Receipt Date: 20060627
  Transmission Date: 20061208
  Serious: Yes (Other)
  Sender: FDA-Public Use
  Company Number: US200604004572

PATIENT
  Age: 69 Year
  Sex: Female
  Weight: 55.8 kg

DRUGS (2)
  1. FORTEO [Suspect]
     Indication: OSTEOPOROSIS
     Dates: start: 20051012
  2. FORTEO PEN (FORTEO PEN) [Concomitant]

REACTIONS (3)
  - BASAL CELL CARCINOMA [None]
  - PHARMACEUTICAL PRODUCT COMPLAINT [None]
  - SEBORRHOEIC KERATOSIS [None]
